FAERS Safety Report 11073318 (Version 1)
Quarter: 2015Q2

REPORT INFORMATION
  Report Type: Report from Study
  Country: US (occurrence: US)
  Receive Date: 20150428
  Receipt Date: 20150428
  Transmission Date: 20150821
  Serious: Yes (Hospitalization, Congenital Anomaly)
  Sender: FDA-Public Use
  Company Number: US-ABBVIE-12P-163-1017831-00

PATIENT
  Sex: Female

DRUGS (5)
  1. NORVIR [Suspect]
     Active Substance: RITONAVIR
     Indication: MATERNAL EXPOSURE TIMING UNSPECIFIED
     Route: 064
  2. COMBIVIR [Suspect]
     Active Substance: LAMIVUDINE\ZIDOVUDINE
     Indication: MATERNAL EXPOSURE TIMING UNSPECIFIED
     Route: 064
  3. KALETRA [Suspect]
     Active Substance: LOPINAVIR\RITONAVIR
     Indication: MATERNAL EXPOSURE TIMING UNSPECIFIED
     Route: 064
  4. REYATAZ [Suspect]
     Active Substance: ATAZANAVIR SULFATE
     Indication: MATERNAL EXPOSURE TIMING UNSPECIFIED
     Route: 064
  5. TRUVADA [Suspect]
     Active Substance: EMTRICITABINE\TENOFOVIR DISOPROXIL FUMARATE
     Indication: MATERNAL EXPOSURE TIMING UNSPECIFIED
     Route: 064

REACTIONS (22)
  - Cytogenetic abnormality [Unknown]
  - High arched palate [Unknown]
  - Facial asymmetry [Unknown]
  - Acute respiratory distress syndrome [Unknown]
  - Foetal exposure during pregnancy [Unknown]
  - Syndactyly [Unknown]
  - Sepsis [Unknown]
  - Skull malformation [Unknown]
  - Congenital anomaly [Unknown]
  - Congenital nose malformation [Unknown]
  - Respiratory failure [Unknown]
  - Congenital genital malformation female [Unknown]
  - Ear malformation [Unknown]
  - Dysmorphism [Unknown]
  - Low set ears [Unknown]
  - Premature baby [Unknown]
  - Congenital foot malformation [Unknown]
  - Dry skin [Unknown]
  - Brachycephaly [Unknown]
  - Congenital eye disorder [Unknown]
  - Congenital skin dimples [Unknown]
  - Clinodactyly [Unknown]
